FAERS Safety Report 4908418-5 (Version None)
Quarter: 2006Q1

REPORT INFORMATION
  Report Type: 
  Country: None (occurrence: None)
  Receive Date: 20060210
  Receipt Date: 20050718
  Transmission Date: 20060701
  Serious: No
  Sender: FDA-Public Use
  Company Number: US-GLAXOSMITHKLINE-A0566885A

PATIENT
  Age: 8 Year
  Sex: Female

DRUGS (3)
  1. PAXIL [Suspect]
     Indication: OBSESSIVE-COMPULSIVE DISORDER
     Dosage: 1TSP PER DAY
     Route: 048
     Dates: start: 20040101, end: 20050715
  2. TYLENOL (CAPLET) [Concomitant]
  3. RISPERDAL [Concomitant]

REACTIONS (8)
  - ABDOMINAL PAIN UPPER [None]
  - ADVERSE EVENT [None]
  - DIZZINESS [None]
  - EUPHORIC MOOD [None]
  - HEADACHE [None]
  - LETHARGY [None]
  - NAUSEA [None]
  - PHARYNGITIS STREPTOCOCCAL [None]
